FAERS Safety Report 5671791-7 (Version None)
Quarter: 2008Q1

REPORT INFORMATION
  Report Type: 
  Country: None (occurrence: None)
  Receive Date: 20080314
  Receipt Date: 20080303
  Transmission Date: 20080703
  Serious: Yes (Other)
  Sender: FDA-Public Use
  Company Number: 230675J08USA

PATIENT
  Age: 43 Year
  Sex: Female

DRUGS (3)
  1. REBIF [Suspect]
     Indication: MULTIPLE SCLEROSIS
     Dosage: 44 MCG, 3 IN 1 WEEKS, SUBCUTANEOUS
     Route: 058
     Dates: start: 20051001
  2. UNSPECIFIED MEDICATIONS (ALL OTHER THERAPEUTIC PRODUCTS) [Concomitant]
  3. INSULIN (INSULIN) [Concomitant]

REACTIONS (6)
  - DIALYSIS [None]
  - GALLBLADDER DISORDER [None]
  - PNEUMONIA [None]
  - RENAL DISORDER [None]
  - SKIN ULCER [None]
  - VULVAL CANCER [None]
